FAERS Safety Report 8339045-8 (Version None)
Quarter: 2012Q2

REPORT INFORMATION
  Report Type: 
  Country: None (occurrence: None)
  Receive Date: 20120502
  Receipt Date: 20120419
  Transmission Date: 20120825
  Serious: Yes (Other)
  Sender: FDA-Public Use
  Company Number: 1203-164

PATIENT
  Age: 78 Year
  Sex: Male

DRUGS (2)
  1. EYLEA [Suspect]
     Dosage: INTRAVITREAL
     Dates: start: 20111215
  2. LUCENTIS (RANIBISUMAB) [Concomitant]

REACTIONS (6)
  - VISUAL ACUITY REDUCED [None]
  - RETINAL DETACHMENT [None]
  - RETINAL SCAR [None]
  - MACULAR FIBROSIS [None]
  - MACULAR OEDEMA [None]
  - RETINAL DEGENERATION [None]
